FAERS Safety Report 22885240 (Version 3)
Quarter: 2023Q4

REPORT INFORMATION
  Report Type: Spontaneous
  Country: US (occurrence: US)
  Receive Date: 20230830
  Receipt Date: 20231026
  Transmission Date: 20240110
  Serious: Yes (Other)
  Sender: FDA-Public Use
  Company Number: US-BoehringerIngelheim-2023-BI-257688

PATIENT
  Age: 82 Year
  Sex: Female

DRUGS (1)
  1. SPIRIVA RESPIMAT [Suspect]
     Active Substance: TIOTROPIUM BROMIDE
     Indication: Lung neoplasm
     Dosage: 2 PUFFS A DAY
     Route: 055
     Dates: start: 2021

REACTIONS (3)
  - Lung neoplasm [Not Recovered/Not Resolved]
  - Pancreatic carcinoma [Not Recovered/Not Resolved]
  - Off label use [Unknown]

NARRATIVE: CASE EVENT DATE: 20210101
